FAERS Safety Report 18758551 (Version 2)
Quarter: 2025Q2

REPORT INFORMATION
  Report Type: Spontaneous
  Country: GB (occurrence: GB)
  Receive Date: 20210120
  Receipt Date: 20250628
  Transmission Date: 20250717
  Serious: Yes (Hospitalization, Other)
  Sender: AUROBINDO
  Company Number: GB-GLAXOSMITHKLINE-GB2020GSK238898

PATIENT
  Age: 44 Year
  Sex: Male

DRUGS (8)
  1. CODEINE PHOSPHATE [Suspect]
     Active Substance: CODEINE PHOSPHATE
     Indication: Back pain
     Route: 065
  2. FLUCLOXACILLIN [Suspect]
     Active Substance: FLUCLOXACILLIN
     Indication: Staphylococcal infection
     Route: 065
  3. FLUCLOXACILLIN [Suspect]
     Active Substance: FLUCLOXACILLIN
     Indication: Cellulitis
  4. ACETAMINOPHEN [Suspect]
     Active Substance: ACETAMINOPHEN
     Indication: Back pain
     Route: 065
  5. COCODAMOL [Suspect]
     Active Substance: ACETAMINOPHEN\CODEINE PHOSPHATE
     Indication: Back pain
     Route: 065
  6. COCODAMOL [Suspect]
     Active Substance: ACETAMINOPHEN\CODEINE PHOSPHATE
     Dosage: 10 DOSAGE FORM, ONCE A DAY
     Route: 048
  7. ESOMEPRAZOLE [Concomitant]
     Active Substance: ESOMEPRAZOLE
     Indication: Product used for unknown indication
     Dosage: 20 MILLIGRAM, ONCE A DAY  (OD)
     Route: 065
  8. MIRTAZAPINE [Concomitant]
     Active Substance: MIRTAZAPINE
     Indication: Product used for unknown indication
     Dosage: 30 MILLIGRAM, ONCE A DAY (AT NIGHT)
     Route: 065

REACTIONS (30)
  - Lethargy [Unknown]
  - Muscle spasms [Unknown]
  - Paraesthesia [Unknown]
  - Weight decreased [Unknown]
  - Pancytopenia [Recovered/Resolved]
  - Encephalopathy [Recovered/Resolved]
  - Hypotension [Recovered/Resolved]
  - Kussmaul respiration [Recovered/Resolved]
  - Malaise [Recovered/Resolved]
  - Hypokalaemia [Recovered/Resolved]
  - Hepatic cirrhosis [Recovered/Resolved]
  - Metabolic dysfunction-associated steatohepatitis [Recovered/Resolved]
  - Sepsis [Recovered/Resolved]
  - Lactic acidosis [Recovered/Resolved]
  - Metabolic acidosis [Recovered/Resolved]
  - Myositis [Recovered/Resolved]
  - Somnolence [Recovered/Resolved]
  - Hyperammonaemia [Recovered/Resolved]
  - Peripheral circulatory failure [Recovered/Resolved]
  - Pyrexia [Recovered/Resolved]
  - Confusional state [Recovered/Resolved]
  - Tachycardia [Recovered/Resolved]
  - Pyroglutamic acidosis [Recovered/Resolved]
  - Tachypnoea [Recovered/Resolved]
  - Hypoalbuminaemia [Recovered/Resolved]
  - Liver disorder [Recovered/Resolved]
  - Deep vein thrombosis [Recovered/Resolved]
  - General physical health deterioration [Recovered/Resolved]
  - Hepatic steatosis [Recovered/Resolved]
  - Intentional product misuse [Unknown]
